FAERS Safety Report 4964953-5 (Version None)
Quarter: 2006Q2

REPORT INFORMATION
  Report Type: 
  Country: None (occurrence: None)
  Receive Date: 20060406
  Receipt Date: 20060327
  Transmission Date: 20061013
  Serious: Yes (Hospitalization)
  Sender: FDA-Public Use
  Company Number: 2006UW05355

PATIENT
  Age: 62 Year
  Sex: Female
  Weight: 47.6 kg

DRUGS (2)
  1. TOPROL-XL [Suspect]
     Indication: HYPERTENSION
     Route: 048
     Dates: start: 20050101
  2. VITAMINS [Concomitant]

REACTIONS (5)
  - BRADYCARDIA [None]
  - CHRONIC OBSTRUCTIVE PULMONARY DISEASE [None]
  - LUNG HYPERINFLATION [None]
  - PALPITATIONS [None]
  - WHEEZING [None]
